FAERS Safety Report 9089577 (Version 1)
Quarter: 2013Q1

REPORT INFORMATION
  Report Type: Report from Study
  Country: US (occurrence: US)
  Receive Date: 20130201
  Receipt Date: 20130201
  Transmission Date: 20140127
  Serious: No
  Sender: FDA-Public Use
  Company Number: US-ABBOTT-12P-163-1017993-00

PATIENT
  Sex: Female
  Weight: 45.85 kg

DRUGS (2)
  1. HUMIRA [Suspect]
     Indication: PRODUCT USED FOR UNKNOWN INDICATION
     Dates: start: 20081021
  2. MOTRIN [Concomitant]
     Indication: PRODUCT USED FOR UNKNOWN INDICATION

REACTIONS (3)
  - Hypopnoea [Not Recovered/Not Resolved]
  - Dyspnoea [Recovered/Resolved]
  - Anxiety [Not Recovered/Not Resolved]
